FAERS Safety Report 4644219-3 (Version None)
Quarter: 2005Q2

REPORT INFORMATION
  Report Type: 
  Country: None (occurrence: None)
  Receive Date: 20050331
  Receipt Date: 20050105
  Transmission Date: 20051028
  Serious: No
  Sender: FDA-Public Use
  Company Number: 05P-163-0285431-00

PATIENT
  Age: 77 Year
  Sex: Female
  Weight: 63.5036 kg

DRUGS (10)
  1. HUMIRA [Suspect]
     Indication: RHEUMATOID ARTHRITIS
     Dosage: 40 MG, 1 IN 2 WK, SUBCUTANEOUS;  40 MG, 1 IN 2 WK, SUBCUTANEOUS
     Route: 058
     Dates: start: 20040701, end: 20041101
  2. HUMIRA [Suspect]
     Indication: RHEUMATOID ARTHRITIS
     Dosage: 40 MG, 1 IN 2 WK, SUBCUTANEOUS;  40 MG, 1 IN 2 WK, SUBCUTANEOUS
     Route: 058
     Dates: start: 20041201
  3. METHOTREXATE [Concomitant]
  4. PREDNISONE [Concomitant]
  5. RISEDRONATE SODIUM [Concomitant]
  6. CALCIUM WITH VITAMIN D [Concomitant]
  7. CLOPIDOGREL BISULFATE [Concomitant]
  8. ATORVASTATIN CALCIUM [Concomitant]
  9. NICOTINIC ACID [Concomitant]
  10. TOPROL-XL [Concomitant]

REACTIONS (3)
  - CONTUSION [None]
  - GENERALISED ERYTHEMA [None]
  - INJECTION SITE PAIN [None]
